FAERS Safety Report 7640105-5 (Version None)
Quarter: 2011Q3

REPORT INFORMATION
  Report Type: 
  Country: None (occurrence: None)
  Receive Date: 20110728
  Receipt Date: 20110720
  Transmission Date: 20111222
  Serious: Yes (Hospitalization)
  Sender: FDA-Public Use
  Company Number: FI-AMGEN-FINSP2011037554

PATIENT
  Age: 64 Year
  Sex: Female

DRUGS (5)
  1. VITAMIN D [Concomitant]
     Dosage: 100 UG, DAILY
  2. THYROXIN [Concomitant]
     Dosage: UNK
     Route: 048
     Dates: start: 20100801
  3. CALCIUM CARBONATE [Concomitant]
     Dosage: 1 TABLET TWICE DAILY
     Route: 048
  4. ENBREL [Suspect]
     Indication: RHEUMATOID ARTHRITIS
     Dosage: 50 MG, WEEKLY
     Route: 058
     Dates: start: 20100108, end: 20110514
  5. PREDNISOLONE [Concomitant]
     Dosage: 5 MG, DAILY
     Route: 048
     Dates: start: 20100823

REACTIONS (3)
  - PORTAL VEIN THROMBOSIS [None]
  - BUDD-CHIARI SYNDROME [None]
  - ACUTE HEPATIC FAILURE [None]
